FAERS Safety Report 25982694 (Version 1)
Quarter: 2025Q4

REPORT INFORMATION
  Report Type: Spontaneous
  Country: EU (occurrence: EU)
  Receive Date: 20251031
  Receipt Date: 20251031
  Transmission Date: 20260118
  Serious: Yes (Hospitalization, Other)
  Sender: AUROBINDO
  Company Number: EU-MINISAL02-1063219

PATIENT
  Age: 65 Year
  Sex: Male

DRUGS (3)
  1. CARBOPLATIN [Suspect]
     Active Substance: CARBOPLATIN
     Indication: Squamous cell carcinoma of head and neck
     Dosage: 314.6 MILLIGRAM
     Route: 042
     Dates: start: 20250911, end: 20251007
  2. KEYTRUDA [Suspect]
     Active Substance: PEMBROLIZUMAB
     Indication: Squamous cell carcinoma of head and neck
     Dosage: 200 MILLIGRAM
     Route: 042
     Dates: start: 20250911, end: 20251007
  3. FLUOROURACIL [Suspect]
     Active Substance: FLUOROURACIL
     Indication: Squamous cell carcinoma of head and neck
     Dosage: 69.2 MILLIGRAM
     Route: 042
     Dates: start: 20250911, end: 20251007

REACTIONS (2)
  - Nephropathy toxic [Unknown]
  - Ototoxicity [Unknown]

NARRATIVE: CASE EVENT DATE: 20251007
